FAERS Safety Report 8419700-1 (Version None)
Quarter: 2012Q2

REPORT INFORMATION
  Report Type: 
  Country: None (occurrence: None)
  Receive Date: 20120607
  Receipt Date: 20120604
  Transmission Date: 20120825
  Serious: Yes (Other)
  Sender: FDA-Public Use
  Company Number: US-AMGEN-USASP2011000951

PATIENT
  Age: 59 Year
  Sex: Female

DRUGS (3)
  1. ENBREL [Suspect]
     Indication: RHEUMATOID ARTHRITIS
     Dosage: 50 MG, QWK
     Route: 058
     Dates: start: 20090101
  2. METHOTREXATE [Concomitant]
     Indication: RHEUMATOID ARTHRITIS
     Dosage: 20 MG, QWK
     Route: 048
  3. ENBREL [Suspect]
     Dosage: 50 MG, QWK
     Route: 058
     Dates: start: 20091028

REACTIONS (10)
  - GAIT DISTURBANCE [None]
  - NIGHT BLINDNESS [None]
  - FATIGUE [None]
  - MUSCLE TIGHTNESS [None]
  - DIPLOPIA [None]
  - FIBROMYALGIA [None]
  - BACK PAIN [None]
  - MYALGIA [None]
  - TEMPERATURE INTOLERANCE [None]
  - ARTHRITIS [None]
